FAERS Safety Report 19123002 (Version 1)
Quarter: 2021Q2

REPORT INFORMATION
  Report Type: Spontaneous
  Country: US (occurrence: US)
  Receive Date: 20210412
  Receipt Date: 20210412
  Transmission Date: 20210717
  Serious: Yes (Other)
  Sender: FDA-Public Use
  Company Number: US-EXELA PHARMA SCIENCES, LLC-2021EXL00005

PATIENT
  Age: 33 Year
  Sex: Female
  Weight: 90.7 kg

DRUGS (11)
  1. HYDROMORPHONE [Concomitant]
     Active Substance: HYDROMORPHONE
     Route: 008
  2. MAGNESIUM SULFATE. [Suspect]
     Active Substance: MAGNESIUM SULFATE
     Indication: TOCOLYSIS
     Dosage: 2 G PRIOR TO UTERINE INCISION AND 4 G BEFORE UTERINE CLOSURE
     Route: 042
  3. MAGNESIUM SULFATE. [Suspect]
     Active Substance: MAGNESIUM SULFATE
     Dosage: 1 G PER HOUR
     Route: 042
  4. BUPIVACAINE. [Concomitant]
     Active Substance: BUPIVACAINE
     Route: 008
  5. SUGAMMADEX [Concomitant]
     Active Substance: SUGAMMADEX
     Route: 065
  6. MAGNESIUM SULFATE. [Suspect]
     Active Substance: MAGNESIUM SULFATE
     Dosage: 4 G
     Route: 042
  7. PHENYLEPHRINE [Concomitant]
     Active Substance: PHENYLEPHRINE HYDROCHLORIDE
     Indication: HYPOTENSION
     Dosage: 20?40 MCG/MIN
     Route: 042
  8. SEVOFLURANE. [Concomitant]
     Active Substance: SEVOFLURANE
     Route: 065
  9. MAGNESIUM SULFATE. [Suspect]
     Active Substance: MAGNESIUM SULFATE
     Dosage: 2 G
     Route: 042
  10. ROCURONIUM [Concomitant]
     Active Substance: ROCURONIUM BROMIDE
     Route: 065
  11. CRYSTALLOID [Concomitant]
     Active Substance: UNSPECIFIED INGREDIENT
     Dosage: 900 ML
     Route: 065

REACTIONS (1)
  - Pulmonary oedema [Recovered/Resolved]
